FAERS Safety Report 4369134-4 (Version None)
Quarter: 2004Q2

REPORT INFORMATION
  Report Type: 
  Country: None (occurrence: None)
  Receive Date: 20040528
  Receipt Date: 20040510
  Transmission Date: 20050107
  Serious: Yes (Hospitalization, Disabling)
  Sender: FDA-Public Use
  Company Number: 2004213208JP

PATIENT
  Age: 16 Year
  Sex: Female

DRUGS (2)
  1. GENOTROPIN [Suspect]
     Indication: HYPOPITUITARISM
     Dosage: SEE IMAGE
     Route: 057
     Dates: start: 19980801, end: 20030301
  2. GENOTROPIN [Suspect]
     Indication: HYPOPITUITARISM
     Dosage: SEE IMAGE
     Route: 057
     Dates: start: 20040312

REACTIONS (6)
  - CONDITION AGGRAVATED [None]
  - DIABETES INSIPIDUS [None]
  - HYPOGONADISM [None]
  - HYPOPITUITARISM [None]
  - HYPOTHYROIDISM [None]
  - RATHKE'S CLEFT CYST [None]
